FAERS Safety Report 7919684-6 (Version None)
Quarter: 2011Q4

REPORT INFORMATION
  Report Type: 
  Country: None (occurrence: None)
  Receive Date: 20111115
  Receipt Date: 20111101
  Transmission Date: 20120403
  Serious: Yes (Death, Life-Threatening, Hospitalization, Other)
  Sender: FDA-Public Use
  Company Number: 2011MA015813

PATIENT
  Age: 85 Year
  Sex: Female
  Weight: 49.8957 kg

DRUGS (38)
  1. CITACEL + VITAMIN [Concomitant]
  2. NITROGLYCERIN [Concomitant]
  3. DOPAMINE HCL [Concomitant]
  4. ANCEF [Concomitant]
  5. TOPROL-XL [Concomitant]
  6. NIPRIDE [Concomitant]
  7. DIGOXIN [Suspect]
     Indication: ATRIAL FIBRILLATION
     Dosage: 0.5 MG; X1; IV
     Route: 042
     Dates: start: 20060201, end: 20080101
  8. OSMOLITE [Concomitant]
  9. MORPHINE [Concomitant]
  10. LEVOPHED [Concomitant]
  11. ZOFRAN [Concomitant]
  12. ATIVAN [Concomitant]
  13. ARGATROBAN [Concomitant]
  14. ACTONEL [Concomitant]
  15. ZINACEF [Concomitant]
  16. ARANESP [Concomitant]
  17. MERREM [Concomitant]
  18. REGLAN [Concomitant]
  19. ANTIBIOTIC [Concomitant]
  20. DIOVAN [Concomitant]
  21. ATROVENT [Concomitant]
  22. VANCOMYCIN [Concomitant]
  23. SEROQUEL [Concomitant]
  24. LIDOCAINE [Concomitant]
  25. D [Concomitant]
  26. LASIX [Concomitant]
  27. PROTONIX [Concomitant]
  28. XLANTAN [Concomitant]
  29. DIGIBIND [Concomitant]
  30. CALCIUM CHANNEL BLOCKER [Concomitant]
  31. SYNTHROID [Concomitant]
  32. ANALGESIC MEDICATION [Concomitant]
  33. AMIODARONE HCL [Concomitant]
  34. DIPRIVAN [Concomitant]
  35. DARVOCET-N 100 [Concomitant]
  36. HEPARIN [Concomitant]
  37. POTASSIUM CHLORIDE [Concomitant]
  38. PREVACID [Concomitant]

REACTIONS (28)
  - BRADYCARDIA [None]
  - ATRIOVENTRICULAR BLOCK COMPLETE [None]
  - RESPIRATORY FAILURE [None]
  - ATRIAL FIBRILLATION [None]
  - HYPOTENSION [None]
  - CARDIAC FAILURE CONGESTIVE [None]
  - PAIN [None]
  - ANXIETY [None]
  - DIARRHOEA [None]
  - FATIGUE [None]
  - MENTAL DISORDER [None]
  - PERICARDIAL EFFUSION [None]
  - DIZZINESS [None]
  - DYSPNOEA [None]
  - VOMITING [None]
  - LEUKOCYTOSIS [None]
  - TOXICITY TO VARIOUS AGENTS [None]
  - ECONOMIC PROBLEM [None]
  - NAUSEA [None]
  - SYNCOPE [None]
  - INJURY [None]
  - MYOCARDIAL INFARCTION [None]
  - RENAL FAILURE ACUTE [None]
  - EMOTIONAL DISORDER [None]
  - PLEURAL EFFUSION [None]
  - CARDIAC PERFORATION [None]
  - EXERCISE ELECTROCARDIOGRAM ABNORMAL [None]
  - HYPOTHYROIDISM [None]
